FAERS Safety Report 18388259 (Version 5)
Quarter: 2023Q2

REPORT INFORMATION
  Report Type: Report from Study
  Country: NO (occurrence: NO)
  Receive Date: 20201015
  Receipt Date: 20230516
  Transmission Date: 20230722
  Serious: No
  Sender: FDA-Public Use
  Company Number: NO-SHIRE-NO201850869

PATIENT
  Age: 9 Year
  Sex: Female

DRUGS (23)
  1. TEDUGLUTIDE [Suspect]
     Active Substance: TEDUGLUTIDE
     Indication: Short-bowel syndrome
     Dosage: 1.4 MILLIGRAM, QD
     Route: 042
     Dates: start: 20180209, end: 20200602
  2. TEDUGLUTIDE [Suspect]
     Active Substance: TEDUGLUTIDE
     Indication: Short-bowel syndrome
     Dosage: 1.4 MILLIGRAM, QD
     Route: 042
     Dates: start: 20180209, end: 20200602
  3. TEDUGLUTIDE [Suspect]
     Active Substance: TEDUGLUTIDE
     Indication: Short-bowel syndrome
     Dosage: 1.4 MILLIGRAM, QD
     Route: 042
     Dates: start: 20180209, end: 20200602
  4. TEDUGLUTIDE [Suspect]
     Active Substance: TEDUGLUTIDE
     Indication: Short-bowel syndrome
     Dosage: 1.4 MILLIGRAM, QD
     Route: 042
     Dates: start: 20180209, end: 20200602
  5. TEDUGLUTIDE [Suspect]
     Active Substance: TEDUGLUTIDE
     Dosage: 1.8 MILLIGRAM
     Route: 042
     Dates: start: 20200603
  6. TEDUGLUTIDE [Suspect]
     Active Substance: TEDUGLUTIDE
     Dosage: 1.8 MILLIGRAM
     Route: 042
     Dates: start: 20200603
  7. TEDUGLUTIDE [Suspect]
     Active Substance: TEDUGLUTIDE
     Dosage: 1.8 MILLIGRAM
     Route: 042
     Dates: start: 20200603
  8. TEDUGLUTIDE [Suspect]
     Active Substance: TEDUGLUTIDE
     Dosage: 1.8 MILLIGRAM
     Route: 042
     Dates: start: 20200603
  9. ESOMEPRAZOLE [Concomitant]
     Active Substance: ESOMEPRAZOLE
     Indication: Hypertension
     Route: 065
  10. URSODIOL [Concomitant]
     Active Substance: URSODIOL
     Indication: Liver disorder
     Route: 065
  11. LOPERAMIDE [Concomitant]
     Active Substance: LOPERAMIDE
     Indication: Diarrhoea
     Route: 065
  12. AMOXICILLIN\CLAVULANIC ACID [Concomitant]
     Active Substance: AMOXICILLIN\CLAVULANIC ACID
     Indication: Overgrowth bacterial
     Route: 065
  13. NORDITROPIN [Concomitant]
     Active Substance: SOMATROPIN
     Indication: Growth disorder
     Route: 065
  14. HYDROXOCOBALAMIN [Concomitant]
     Active Substance: HYDROXOCOBALAMIN
     Indication: Vitamin B12 deficiency
     Route: 065
  15. SOMATROPIN [Concomitant]
     Active Substance: SOMATROPIN
     Indication: Growth hormone deficiency
     Route: 065
  16. AMOXICILLIN [Concomitant]
     Active Substance: AMOXICILLIN
     Indication: Oral bacterial infection
     Dosage: 60 MILLIGRAM, TID
     Route: 048
     Dates: start: 20091203
  17. GENTAMYCIN H [Concomitant]
     Indication: Oral bacterial infection
     Dosage: 20 MILLIGRAM, BID
     Route: 048
     Dates: start: 20091125
  18. METRONIDAZOLE [Concomitant]
     Active Substance: METRONIDAZOLE
     Indication: Oral bacterial infection
     Dosage: 60 MILLIGRAM, TID
     Route: 048
     Dates: start: 20091125
  19. METRONIDAZOLE [Concomitant]
     Active Substance: METRONIDAZOLE
     Indication: Overgrowth bacterial
  20. OMACOR [Concomitant]
     Active Substance: OMEGA-3-ACID ETHYL ESTERS
     Indication: Mouth ulceration
     Dosage: 1.0 CAP, BID
     Route: 048
     Dates: start: 20180315
  21. OMACOR [Concomitant]
     Active Substance: OMEGA-3-ACID ETHYL ESTERS
     Indication: Anastomotic ulcer
  22. GENTAMICIN [Concomitant]
     Active Substance: GENTAMICIN
     Indication: Overgrowth bacterial
     Dosage: 20 MILLIGRAM, BID
     Route: 048
     Dates: start: 20091125
  23. Stimulance [Concomitant]
     Indication: Probiotic therapy
     Dosage: 12 GRAM, QD
     Route: 048
     Dates: start: 20230303

REACTIONS (2)
  - Blood albumin decreased [Recovered/Resolved]
  - Melanocytic naevus [Not Recovered/Not Resolved]

NARRATIVE: CASE EVENT DATE: 20180530
